FAERS Safety Report 24439982 (Version 2)
Quarter: 2024Q4

REPORT INFORMATION
  Report Type: Report from Study
  Country: US (occurrence: US)
  Receive Date: 20241015
  Receipt Date: 20241112
  Transmission Date: 20250115
  Serious: Yes (Other)
  Sender: JOHNSON AND JOHNSON
  Company Number: US-JNJFOC-20241030159

PATIENT
  Age: 57 Year
  Sex: Female

DRUGS (2)
  1. SPRAVATO [Suspect]
     Active Substance: ESKETAMINE
     Indication: Depression
     Dosage: ^56 MG, 2 TOTAL DOSES^
     Dates: start: 20240923, end: 20240925
  2. SPRAVATO [Suspect]
     Active Substance: ESKETAMINE
     Dosage: ^84 MG, 3 TOTAL DOSES^ PATIENT ALSO HAD A DOSE ON 10-OCT-2024
     Dates: start: 20240930, end: 20241008

REACTIONS (8)
  - Hallucination, visual [Unknown]
  - Suicidal ideation [Unknown]
  - Crying [Unknown]
  - Anxiety [Unknown]
  - Fear [Unknown]
  - Euphoric mood [Unknown]
  - Adverse event [Not Recovered/Not Resolved]
  - Therapeutic product effect decreased [Unknown]

NARRATIVE: CASE EVENT DATE: 20240101
